FAERS Safety Report 7003587-8 (Version None)
Quarter: 2010Q3

REPORT INFORMATION
  Report Type: 
  Country: None (occurrence: None)
  Receive Date: 20100916
  Receipt Date: 20100901
  Transmission Date: 20110219
  Serious: Yes (Hospitalization)
  Sender: FDA-Public Use
  Company Number: AE 2010-241

PATIENT
  Sex: Male
  Weight: 95 kg

DRUGS (3)
  1. PRIALT [Suspect]
     Indication: NEURALGIA
     Dosage: 0.05-0.15 UG/HOUR   INTRATHECAL
     Route: 037
     Dates: start: 20100601, end: 20100605
  2. MORPHINE CHLORHYDRATE [Concomitant]
  3. MORPHINE [Concomitant]

REACTIONS (2)
  - CEREBELLAR SYNDROME [None]
  - DYSPNOEA [None]
